FAERS Safety Report 8676953 (Version 2)
Quarter: 2012Q4

REPORT INFORMATION
  Report Type: 
  Country: US (occurrence: US)
  Receive Date: 20120723
  Receipt Date: 20120912
  Transmission Date: 20130627
  Serious: Yes (Hospitalization)
  Sender: FDA-Public Use
  Company Number: US-SANOFI-AVENTIS-2012SA050018

PATIENT
  Age: 58 Year
  Sex: Female

DRUGS (2)
  1. DDAVP [Suspect]
     Indication: DIABETES INSIPIDUS
     Dosage: 0.1 mg in the morning and 0.2 mg in the evening
     Route: 048
  2. DDAVP [Suspect]
     Indication: DIABETES INSIPIDUS
     Route: 045

REACTIONS (1)
  - Vomiting [Unknown]
